FAERS Safety Report 6728205-5 (Version None)
Quarter: 2010Q2

REPORT INFORMATION
  Report Type: 
  Country: None (occurrence: None)
  Receive Date: 20100517
  Receipt Date: 20100511
  Transmission Date: 20101027
  Serious: Yes (Death)
  Sender: FDA-Public Use
  Company Number: B0653108A

PATIENT
  Age: 78 Year
  Sex: Female

DRUGS (1)
  1. LAMICTAL [Suspect]
     Indication: EPILEPSY
     Dosage: 150MG PER DAY
     Route: 048
     Dates: start: 20100101, end: 20100301

REACTIONS (3)
  - MYOCARDIAL INFARCTION [None]
  - RASH [None]
  - STEVENS-JOHNSON SYNDROME [None]
